FAERS Safety Report 5599629-7 (Version None)
Quarter: 2008Q1

REPORT INFORMATION
  Report Type: 
  Country: None (occurrence: None)
  Receive Date: 20080118
  Receipt Date: 20080107
  Transmission Date: 20080703
  Serious: Yes (Death)
  Sender: FDA-Public Use
  Company Number: 2008S1000527

PATIENT
  Sex: Male

DRUGS (1)
  1. LORATADINE [Suspect]
     Dosage: ORAL
     Route: 048

REACTIONS (2)
  - INCORRECT DOSE ADMINISTERED [None]
  - WRONG DRUG ADMINISTERED [None]
